FAERS Safety Report 11118125 (Version 1)
Quarter: 2015Q2

REPORT INFORMATION
  Report Type: Spontaneous
  Country: US (occurrence: None)
  Receive Date: 20150515
  Receipt Date: 20150515
  Transmission Date: 20150821
  Serious: No
  Sender: FDA-Public Use
  Company Number: None

PATIENT
  Age: 47 Year
  Sex: Female

DRUGS (1)
  1. RIBASPHERE [Suspect]
     Active Substance: RIBAVIRIN
     Dates: start: 20150417

REACTIONS (7)
  - Nausea [None]
  - Dizziness [None]
  - Confusional state [None]
  - Headache [None]
  - Weight decreased [None]
  - Vomiting [None]
  - Memory impairment [None]

NARRATIVE: CASE EVENT DATE: 20150425
